FAERS Safety Report 15348683 (Version 1)
Quarter: 2018Q3

REPORT INFORMATION
  Report Type: Spontaneous
  Country: US (occurrence: US)
  Receive Date: 20180904
  Receipt Date: 20180904
  Transmission Date: 20181010
  Serious: Yes (Other)
  Sender: FDA-Public Use
  Company Number: US-ALKERMES INC.-ALK-2018-003878

PATIENT
  Age: 46 Year
  Sex: Female
  Weight: 43.99 kg

DRUGS (5)
  1. LUMIDOL [Concomitant]
     Indication: PRODUCT USED FOR UNKNOWN INDICATION
  2. TRAZODONE [Concomitant]
     Active Substance: TRAZODONE HYDROCHLORIDE
     Indication: PRODUCT USED FOR UNKNOWN INDICATION
  3. VRAYLAR [Concomitant]
     Active Substance: CARIPRAZINE
     Indication: PRODUCT USED FOR UNKNOWN INDICATION
  4. VIVITROL [Suspect]
     Active Substance: NALTREXONE
     Indication: ALCOHOLISM
     Dosage: 380 MG, QMO
     Route: 030
     Dates: start: 201708
  5. CLONAZEPAM. [Concomitant]
     Active Substance: CLONAZEPAM
     Indication: PRODUCT USED FOR UNKNOWN INDICATION

REACTIONS (9)
  - Drug administration error [Recovered/Resolved]
  - Injection site scar [Recovered/Resolved]
  - Injection site reaction [Not Recovered/Not Resolved]
  - Injection site bruising [Recovered/Resolved]
  - Injection site mass [Recovered/Resolved]
  - Weight decreased [Recovering/Resolving]
  - Injection site nodule [Recovered/Resolved]
  - Injection site pain [Not Recovered/Not Resolved]
  - Injection site abscess [Recovered/Resolved]

NARRATIVE: CASE EVENT DATE: 20170717
